FAERS Safety Report 16373109 (Version 1)
Quarter: 2019Q2

REPORT INFORMATION
  Report Type: Spontaneous
  Country: US (occurrence: US)
  Receive Date: 20190424
  Receipt Date: 20190424
  Transmission Date: 20190711
  Serious: Yes (Other)
  Sender: FDA-Public Use
  Company Number: None

PATIENT
  Age: 51 Year
  Sex: Male
  Weight: 119.93 kg

DRUGS (2)
  1. GENERIC ZYPREXA 20MG [Suspect]
     Active Substance: OLANZAPINE
     Indication: SCHIZOPHRENIA
     Route: 048
     Dates: start: 20190411
  2. GENERIC ZYPREXA 20MG [Suspect]
     Active Substance: OLANZAPINE
     Indication: SCHIZOPHRENIA
     Route: 048
     Dates: start: 20190315

REACTIONS (2)
  - Drug ineffective [None]
  - Paranoia [None]
